FAERS Safety Report 5417261-2 (Version None)
Quarter: 2007Q3

REPORT INFORMATION
  Report Type: 
  Country: None (occurrence: None)
  Receive Date: 20070718
  Receipt Date: 20060630
  Transmission Date: 20080115
  Serious: Yes (Other)
  Sender: FDA-Public Use
  Company Number: 2005135110

PATIENT
  Age: 44 Year
  Sex: Female

DRUGS (3)
  1. CELEBREX [Suspect]
     Indication: ILL-DEFINED DISORDER
  2. BEXTRA [Suspect]
     Indication: CARPAL TUNNEL SYNDROME
     Dosage: 60 MG (20 MG, 3 IN 1 D)
     Dates: start: 20040101, end: 20040701
  3. VIOXX [Suspect]
     Indication: ILL-DEFINED DISORDER

REACTIONS (2)
  - DEPRESSION [None]
  - EMBOLISM [None]
